FAERS Safety Report 18277583 (Version 5)
Quarter: 2022Q3

REPORT INFORMATION
  Report Type: Spontaneous
  Country: IN (occurrence: IN)
  Receive Date: 20200917
  Receipt Date: 20220705
  Transmission Date: 20221027
  Serious: Yes (Other)
  Sender: FDA-Public Use
  Company Number: IN-PFIZER INC-2020358046

PATIENT
  Age: 45 Year
  Sex: Male

DRUGS (1)
  1. SUTENT [Suspect]
     Active Substance: SUNITINIB MALATE
     Indication: Gastrointestinal stromal tumour
     Dosage: 50 MG ONCE A DAY FOR 2 WEEKS ON AND 1 WEEK OFF
     Route: 048
     Dates: start: 20200914

REACTIONS (9)
  - Blood disorder [Unknown]
  - Neoplasm progression [Unknown]
  - Dry skin [Unknown]
  - Pruritus genital [Unknown]
  - Pruritus [Unknown]
  - Mouth ulceration [Unknown]
  - Haematocrit abnormal [Unknown]
  - Flatulence [Unknown]
  - Hepatic lesion [Unknown]
